FAERS Safety Report 17620136 (Version 1)
Quarter: 2020Q2

REPORT INFORMATION
  Report Type: Spontaneous
  Country: US (occurrence: US)
  Receive Date: 20200403
  Receipt Date: 20200403
  Transmission Date: 20200713
  Serious: Yes (Other)
  Sender: FDA-Public Use
  Company Number: US-SA-2020SA081710

PATIENT
  Sex: Female

DRUGS (1)
  1. DULCOLAX (BISACODYL) [Suspect]
     Active Substance: BISACODYL

REACTIONS (5)
  - Deafness [Unknown]
  - Tinnitus [Unknown]
  - Loss of consciousness [Unknown]
  - Muscle spasms [Unknown]
  - Hyperhidrosis [Unknown]
